FAERS Safety Report 23510579 (Version 1)
Quarter: 2024Q1

REPORT INFORMATION
  Report Type: Other
  Country: JP (occurrence: JP)
  Receive Date: 20240211
  Receipt Date: 20240211
  Transmission Date: 20240409
  Serious: Yes (Other)
  Sender: FDA-Public Use
  Company Number: JP-CHUGAI-A2021009900ROCHE

PATIENT
  Age: 51 Year
  Sex: Female
  Weight: 58.5 kg

DRUGS (7)
  1. ROZLYTREK [Suspect]
     Active Substance: ENTRECTINIB
     Indication: Pancreatic neuroendocrine tumour
     Route: 048
     Dates: start: 20210215, end: 20210216
  2. ROZLYTREK [Suspect]
     Active Substance: ENTRECTINIB
     Route: 048
     Dates: start: 20210310, end: 20210315
  3. ROZLYTREK [Suspect]
     Active Substance: ENTRECTINIB
     Route: 048
     Dates: start: 20210316, end: 20210413
  4. ROZLYTREK [Suspect]
     Active Substance: ENTRECTINIB
     Route: 048
     Dates: start: 20210414, end: 20210622
  5. ROZLYTREK [Suspect]
     Active Substance: ENTRECTINIB
     Route: 048
     Dates: start: 20210623, end: 20210810
  6. IRINOTECAN HYDROCHLORIDE [Concomitant]
     Active Substance: IRINOTECAN HYDROCHLORIDE
     Indication: Product used for unknown indication
     Dosage: UNK
     Route: 041
  7. LAROTRECTINIB [Concomitant]
     Active Substance: LAROTRECTINIB

REACTIONS (10)
  - Neutropenia [Unknown]
  - Leukopenia [Unknown]
  - Alanine aminotransferase increased [Unknown]
  - Blood creatinine increased [Unknown]
  - Aspartate aminotransferase increased [Unknown]
  - Dysgeusia [Unknown]
  - Anaemia [Unknown]
  - Blood alkaline phosphatase increased [Unknown]
  - Vertigo [Unknown]
  - Dizziness [Unknown]
